FAERS Safety Report 7798417-0 (Version None)
Quarter: 2011Q4

REPORT INFORMATION
  Report Type: 
  Country: None (occurrence: None)
  Receive Date: 20111005
  Receipt Date: 20110111
  Transmission Date: 20120403
  Serious: No
  Sender: FDA-Public Use
  Company Number: US-BAYER-2011-005418

PATIENT
  Age: 51 Year
  Sex: Male

DRUGS (6)
  1. LEVITRA [Suspect]
     Dosage: 20 MG, PRN
     Route: 048
  2. LEVITRA [Suspect]
     Indication: ERECTILE DYSFUNCTION
     Dosage: 10 MG, PRN
     Route: 048
     Dates: start: 20090101
  3. FLOMAX [Concomitant]
     Indication: PROSTATOMEGALY
     Dosage: 0.4 MG, QD
     Route: 048
     Dates: start: 20080101
  4. SEROQUEL [Concomitant]
     Indication: BIPOLAR DISORDER
     Dosage: 300 MG, QD
     Dates: start: 20080101
  5. SEROQUEL [Concomitant]
     Indication: DEPRESSION
  6. FINASTERIDE [Concomitant]
     Indication: PROSTATOMEGALY
     Dosage: 5 MG, QD
     Dates: start: 20080101

REACTIONS (1)
  - ERECTILE DYSFUNCTION [None]
